FAERS Safety Report 5527825-3 (Version None)
Quarter: 2007Q4

REPORT INFORMATION
  Report Type: 
  Country: None (occurrence: None)
  Receive Date: 20071128
  Receipt Date: 20071122
  Transmission Date: 20080405
  Serious: Yes (Other)
  Sender: FDA-Public Use
  Company Number: B0495963A

PATIENT
  Age: 58 Year
  Sex: Female

DRUGS (15)
  1. VALTREX [Suspect]
     Indication: HERPES SIMPLEX
     Dosage: 500MG TWICE PER DAY
     Route: 048
     Dates: start: 20071114, end: 20071118
  2. CEFZON [Suspect]
     Indication: HERPES ZOSTER
     Route: 048
     Dates: start: 20071114, end: 20071118
  3. DEPAS [Concomitant]
     Route: 048
  4. RESLIN [Concomitant]
     Route: 048
  5. LENDORMIN [Concomitant]
     Route: 048
  6. ROHYPNOL [Concomitant]
     Route: 048
  7. OMEPRAL [Concomitant]
     Route: 048
  8. CHINESE MEDICINE [Concomitant]
     Route: 048
  9. LOXONIN [Concomitant]
     Route: 048
  10. SELBEX [Concomitant]
     Route: 048
  11. UNKNOWN [Concomitant]
     Route: 062
  12. RINDERON VG [Concomitant]
     Route: 062
  13. RIVOTRIL [Concomitant]
     Route: 048
  14. CELESTAMINE TAB [Concomitant]
     Route: 048
  15. ZYLORIC [Concomitant]
     Route: 048

REACTIONS (6)
  - DEPRESSED LEVEL OF CONSCIOUSNESS [None]
  - DIZZINESS [None]
  - DYSARTHRIA [None]
  - FALL [None]
  - HALLUCINATION [None]
  - HEAD INJURY [None]
